FAERS Safety Report 10461166 (Version 1)
Quarter: 2014Q3

REPORT INFORMATION
  Report Type: Spontaneous
  Country: JP (occurrence: JP)
  Receive Date: 20140918
  Receipt Date: 20140918
  Transmission Date: 20150326
  Serious: Yes (Hospitalization, Other)
  Sender: FDA-Public Use
  Company Number: JP-RANBAXY-2014RR-85355

PATIENT
  Age: 56 Year
  Sex: Male

DRUGS (12)
  1. FLOMOXEF [Suspect]
     Active Substance: FLOMOXEF
     Indication: SPINAL CORD INFECTION
     Dosage: FOR APROX 2 YEARS
     Route: 065
  2. VANCOMYCIN HYDROCHLORIDE. [Suspect]
     Active Substance: VANCOMYCIN HYDROCHLORIDE
     Indication: STAPHYLOCOCCAL INFECTION
     Dosage: UNK
     Route: 065
  3. FLUCONAZOLE. [Suspect]
     Active Substance: FLUCONAZOLE
     Indication: CANDIDA INFECTION
     Dosage: UNK
     Route: 065
  4. AMPHOTERICIN B. [Suspect]
     Active Substance: AMPHOTERICIN B
     Indication: ANTIFUNGAL TREATMENT
     Dosage: UNK
     Route: 065
  5. MEROPENEM. [Suspect]
     Active Substance: MEROPENEM
     Indication: SPINAL CORD INFECTION
     Dosage: FOR APROX 2 YEARS
     Route: 065
  6. CEFPIROME [Suspect]
     Active Substance: CEFPIROME
     Indication: SPINAL CORD INFECTION
     Dosage: FOR APROX 2 YEARS
     Route: 065
  7. CIPROFLOXACIN. [Suspect]
     Active Substance: CIPROFLOXACIN
     Indication: SPINAL CORD INFECTION
     Dosage: FOR 2 YEARS APROX
     Route: 065
  8. CEFOZOPRAN [Suspect]
     Active Substance: CEFOZOPRAN
     Indication: SPINAL CORD INFECTION
     Dosage: FOR APROX 2 YEARS
     Route: 065
  9. TEICOPLANIN [Suspect]
     Active Substance: TEICOPLANIN
     Indication: STAPHYLOCOCCAL INFECTION
     Dosage: UNK
     Route: 065
  10. FLUCONAZOLE. [Suspect]
     Active Substance: FLUCONAZOLE
     Indication: ANTIFUNGAL TREATMENT
     Dosage: UNK
     Route: 065
  11. CLINDAMYCIN [Suspect]
     Active Substance: CLINDAMYCIN\CLINDAMYCIN PHOSPHATE
     Indication: SPINAL CORD INFECTION
     Dosage: FOR APROX 2 YEARS
     Route: 065
  12. CEFEPIME [Suspect]
     Active Substance: CEFEPIME\CEFEPIME HYDROCHLORIDE
     Indication: SPINAL CORD INFECTION
     Dosage: FOR APROX 2 YEARS
     Route: 065

REACTIONS (3)
  - Renal disorder [Unknown]
  - Drug ineffective [Recovered/Resolved]
  - Fungal infection [Recovered/Resolved]
